FAERS Safety Report 5364208-3 (Version None)
Quarter: 2007Q2

REPORT INFORMATION
  Report Type: 
  Country: None (occurrence: None)
  Receive Date: 20070620
  Receipt Date: 20070613
  Transmission Date: 20071010
  Serious: Yes (Hospitalization)
  Sender: FDA-Public Use
  Company Number: US-BOEHRINGER INGELHEIM PHARMACEUTICALS, INC.-2007-BP-08978BP

PATIENT
  Sex: Male
  Weight: 75 kg

DRUGS (5)
  1. TIPRANAVIR / RITONAVIR CAPSULES [Suspect]
     Indication: HIV INFECTION
     Dosage: TPV/RTV 1000/400 MG
     Route: 048
  2. SYNTHROID [Concomitant]
     Indication: HYPOTHYROIDISM
     Route: 048
     Dates: start: 20050428
  3. TESTIM [Concomitant]
     Indication: HYPOGONADISM
     Route: 061
     Dates: start: 20051020
  4. ALPRAZOLAM [Concomitant]
     Indication: INSOMNIA
     Route: 048
     Dates: start: 20020101
  5. OXANDRIN [Concomitant]
     Indication: HIV WASTING SYNDROME
     Route: 048
     Dates: start: 20030805

REACTIONS (1)
  - AMNESIA [None]
